FAERS Safety Report 8258224-1 (Version None)
Quarter: 2012Q2

REPORT INFORMATION
  Report Type: 
  Country: None (occurrence: None)
  Receive Date: 20120404
  Receipt Date: 20120327
  Transmission Date: 20120825
  Serious: Yes (Hospitalization, Other)
  Sender: FDA-Public Use
  Company Number: PHHO2012TR005081

PATIENT
  Sex: Female
  Weight: 79 kg

DRUGS (2)
  1. ASPIRIN [Concomitant]
  2. TASIGNA [Suspect]
     Indication: CHRONIC MYELOID LEUKAEMIA
     Dosage: 150 MG, BID
     Route: 048
     Dates: start: 20111121, end: 20120326

REACTIONS (1)
  - ANGINA PECTORIS [None]
